FAERS Safety Report 8097501-4 (Version None)
Quarter: 2012Q1

REPORT INFORMATION
  Report Type: 
  Country: None (occurrence: None)
  Receive Date: 20120129
  Receipt Date: 20120119
  Transmission Date: 20120608
  Serious: Yes (Hospitalization)
  Sender: FDA-Public Use
  Company Number: CA-BRISTOL-MYERS SQUIBB COMPANY-16306698

PATIENT
  Age: 66 Year
  Sex: Female

DRUGS (17)
  1. ORENCIA [Suspect]
     Indication: RHEUMATOID ARTHRITIS
     Dosage: LAST DOSE:25NOV2011,19-JAN-2012 INFUSION:25
     Route: 042
     Dates: start: 20100223
  2. LIPITOR [Concomitant]
  3. OXYBUTYNIN [Concomitant]
  4. ACETAMINOPHEN [Concomitant]
  5. APO-HYDROXYQUINE [Concomitant]
  6. LYRICA [Concomitant]
  7. ACTONEL [Concomitant]
  8. CALCIUM [Concomitant]
  9. ASAPHEN [Concomitant]
  10. OXYCONTIN [Concomitant]
  11. METHOTREXATE SODIUM [Concomitant]
  12. PREDNISONE TAB [Concomitant]
  13. OMEPRAZOLE [Concomitant]
  14. FOLIC ACID [Concomitant]
  15. SYNTHROID [Concomitant]
  16. HYDROCHLOROTHIAZIDE [Concomitant]
  17. SUPRADOL [Concomitant]

REACTIONS (3)
  - FATIGUE [None]
  - DYSPNOEA [None]
  - PRODUCTIVE COUGH [None]
